FAERS Safety Report 5573080-8 (Version None)
Quarter: 2007Q4

REPORT INFORMATION
  Report Type: 
  Country: None (occurrence: None)
  Receive Date: 20071224
  Receipt Date: 20071213
  Transmission Date: 20080405
  Serious: Yes (Hospitalization)
  Sender: FDA-Public Use
  Company Number: CN-ROCHE-537287

PATIENT
  Age: 79 Year
  Sex: Female

DRUGS (2)
  1. XELODA [Suspect]
     Indication: RECTAL CANCER
     Route: 048
     Dates: start: 20071128, end: 20071208
  2. XELODA [Suspect]
     Route: 048
     Dates: start: 20071210

REACTIONS (3)
  - ANOREXIA [None]
  - RESTLESSNESS [None]
  - TREMOR [None]
